FAERS Safety Report 7583324-9 (Version None)
Quarter: 2011Q2

REPORT INFORMATION
  Report Type: 
  Country: None (occurrence: None)
  Receive Date: 20110627
  Receipt Date: 20110627
  Transmission Date: 20111010
  Serious: No
  Sender: FDA-Public Use
  Company Number: None

PATIENT
  Age: 58 Year
  Sex: Female
  Weight: 77.1115 kg

DRUGS (1)
  1. SIMVASTATIN [Suspect]
     Indication: BLOOD CHOLESTEROL INCREASED
     Dosage: 1 BEDTIME PO
     Route: 048
     Dates: start: 20070801, end: 20110624

REACTIONS (5)
  - MYALGIA [None]
  - ARTHRALGIA [None]
  - MUSCULAR WEAKNESS [None]
  - DECREASED ACTIVITY [None]
  - PRODUCT SUBSTITUTION ISSUE [None]
